FAERS Safety Report 11653992 (Version 1)
Quarter: 2015Q4

REPORT INFORMATION
  Report Type: Spontaneous
  Country: PL (occurrence: PL)
  Receive Date: 20151023
  Receipt Date: 20151023
  Transmission Date: 20160304
  Serious: Yes (Hospitalization)
  Sender: FDA-Public Use
  Company Number: PL-ROCHE-1649045

PATIENT
  Sex: Male

DRUGS (7)
  1. ZAFIRON [Concomitant]
     Route: 065
     Dates: start: 2009
  2. THEOSPIREX [Concomitant]
     Active Substance: THEOPHYLLINE ANHYDROUS
     Route: 065
     Dates: start: 2009
  3. VENTOLINE [Concomitant]
     Active Substance: ALBUTEROL
  4. XOLAIR [Suspect]
     Active Substance: OMALIZUMAB
     Indication: ASTHMA
     Route: 058
     Dates: start: 201504, end: 20150929
  5. ALVESCO [Concomitant]
     Active Substance: CICLESONIDE
     Route: 065
     Dates: start: 2009
  6. JOVESTO [Concomitant]
  7. FLIXONASE [Concomitant]
     Active Substance: FLUTICASONE PROPIONATE

REACTIONS (4)
  - Lymphadenitis [Recovered/Resolved]
  - Asthma [Unknown]
  - Furuncle [Not Recovered/Not Resolved]
  - Dyspnoea [Unknown]

NARRATIVE: CASE EVENT DATE: 20150425
